FAERS Safety Report 4503447-8 (Version None)
Quarter: 2004Q4

REPORT INFORMATION
  Report Type: 
  Country: None (occurrence: None)
  Receive Date: 20041112
  Receipt Date: 20041028
  Transmission Date: 20050328
  Serious: Yes (Other)
  Sender: FDA-Public Use
  Company Number: 2004242198GB

PATIENT
  Age: 60 Year
  Sex: Female

DRUGS (7)
  1. CELEBREX [Suspect]
     Indication: ARTHRITIS
     Dosage: 200 MG, BID, ORAL
     Route: 048
     Dates: start: 20041004, end: 20041020
  2. BISACODYL [Concomitant]
  3. LOPRAZOLAM (LOPRAZOLAM) [Concomitant]
  4. RANITIDINE [Concomitant]
  5. DILTIAZEM [Concomitant]
  6. FRUSEMIDE [Concomitant]
  7. CONJUGATED ESTROGENS [Concomitant]

REACTIONS (3)
  - DYSARTHRIA [None]
  - FEELING DRUNK [None]
  - TRANSIENT ISCHAEMIC ATTACK [None]
